FAERS Safety Report 23943543 (Version 1)
Quarter: 2024Q2

REPORT INFORMATION
  Report Type: Spontaneous
  Country: US (occurrence: US)
  Receive Date: 20240606
  Receipt Date: 20240606
  Transmission Date: 20240716
  Serious: Yes (Other)
  Sender: FDA-Public Use
  Company Number: US-IBSA PHARMA INC.-2024IBS000243

PATIENT

DRUGS (1)
  1. LIDOCAINE [Suspect]
     Active Substance: LIDOCAINE
     Indication: Cerebrospinal fluid leakage
     Dosage: 14 PATCHES, QD
     Route: 061
     Dates: start: 2023

REACTIONS (14)
  - Colitis ischaemic [Unknown]
  - Internal haemorrhage [Unknown]
  - Limb discomfort [Unknown]
  - Illness [Unknown]
  - Abdominal pain upper [Unknown]
  - Weight decreased [Unknown]
  - Orthostatic hypotension [Unknown]
  - Faecal calprotectin abnormal [Unknown]
  - Inflammation [Unknown]
  - Nausea [Unknown]
  - Paraesthesia [Unknown]
  - Heart rate increased [Unknown]
  - Intentional overdose [Unknown]
  - Off label use [Unknown]

NARRATIVE: CASE EVENT DATE: 20230101
